FAERS Safety Report 8041629-1 (Version None)
Quarter: 2012Q1

REPORT INFORMATION
  Report Type: 
  Country: None (occurrence: None)
  Receive Date: 20120112
  Receipt Date: 20120104
  Transmission Date: 20120608
  Serious: Yes (Death, Hospitalization)
  Sender: FDA-Public Use
  Company Number: FR-MILLENNIUM PHARMACEUTICALS, INC.-2011-05105

PATIENT

DRUGS (9)
  1. ZOMETA [Concomitant]
     Dosage: 4 MG, UNK
  2. VELCADE [Suspect]
     Indication: MULTIPLE MYELOMA
     Dosage: 2 MG, UNK
     Route: 042
     Dates: start: 20110413, end: 20110706
  3. NEXIUM [Concomitant]
  4. ASPEGIC 325 [Concomitant]
     Dosage: 100 MG, UNK
  5. DEXAMETHASONE TAB [Suspect]
     Indication: MULTIPLE MYELOMA
     Dosage: 20 MG, UNK
     Route: 048
     Dates: start: 20110413, end: 20110708
  6. ALKERAN [Concomitant]
  7. THALIDOMIDE [Concomitant]
     Dosage: UNK
  8. BENDAMUSTINE [Suspect]
     Indication: MULTIPLE MYELOMA
     Dosage: 109 MG, UNK
     Route: 042
     Dates: start: 20110413, end: 20110706
  9. PREDNISONE TAB [Concomitant]
     Dosage: 20 MG, UNK

REACTIONS (6)
  - HYPERTHERMIA [None]
  - LUNG DISORDER [None]
  - DISEASE PROGRESSION [None]
  - PULMONARY OEDEMA [None]
  - CARDIAC FAILURE [None]
  - ARRHYTHMIA SUPRAVENTRICULAR [None]
